FAERS Safety Report 8478817-6 (Version None)
Quarter: 2012Q2

REPORT INFORMATION
  Report Type: 
  Country: None (occurrence: None)
  Receive Date: 20120629
  Receipt Date: 20120620
  Transmission Date: 20120825
  Serious: Yes (Death)
  Sender: FDA-Public Use
  Company Number: DE-JNJFOC-20120514125

PATIENT
  Sex: Female
  Weight: 60 kg

DRUGS (3)
  1. MARCUMAR [Concomitant]
     Dates: start: 20120301
  2. XARELTO [Suspect]
     Indication: CEREBROVASCULAR ACCIDENT PROPHYLAXIS
     Route: 048
     Dates: start: 20120302, end: 20120305
  3. XARELTO [Suspect]
     Indication: ATRIAL FIBRILLATION
     Route: 048
     Dates: start: 20120302, end: 20120305

REACTIONS (3)
  - UPPER GASTROINTESTINAL HAEMORRHAGE [None]
  - SHOCK HAEMORRHAGIC [None]
  - CARDIOVASCULAR INSUFFICIENCY [None]
